FAERS Safety Report 6112176-9 (Version None)
Quarter: 2009Q1

REPORT INFORMATION
  Report Type: 
  Country: None (occurrence: None)
  Receive Date: 20090310
  Receipt Date: 20090302
  Transmission Date: 20090719
  Serious: Yes (Other)
  Sender: FDA-Public Use
  Company Number: 186648USA

PATIENT
  Age: 79 Year
  Sex: Female
  Weight: 86.1834 kg

DRUGS (7)
  1. WARFARIN SODIUM  1MG, 2MG, 2.5MG, 3MG, 4MG, 5MG, 6MG, 7.5MG, 10MG [Suspect]
     Indication: ATRIAL FIBRILLATION
     Dosage: 5 MG PO QOD X 3 DAYS ALTERNATES WITH 2.5 MG PO QOD X 4DAY PER WEEK (2.5 MG), ORAL
     Route: 048
     Dates: start: 20040101
  2. JOINT FOOD [Concomitant]
  3. LOVASTATIN [Concomitant]
  4. NIFEDIPINE [Concomitant]
  5. ATENOLOL [Concomitant]
  6. ALENDRONATE SODIUM [Concomitant]
  7. LOSARTAN POTASSIUM [Concomitant]

REACTIONS (3)
  - FALL [None]
  - HIP FRACTURE [None]
  - INTERNATIONAL NORMALISED RATIO INCREASED [None]
